FAERS Safety Report 26016253 (Version 1)
Quarter: 2025Q4

REPORT INFORMATION
  Report Type: Spontaneous
  Country: US (occurrence: US)
  Receive Date: 20251110
  Receipt Date: 20251110
  Transmission Date: 20260118
  Serious: No
  Sender: EMCURE PHARMACEUTICALS LTD
  Company Number: US-AVET LIFESCIENCES LTD-2025-AVET-000331

PATIENT

DRUGS (1)
  1. BUMETANIDE [Suspect]
     Active Substance: BUMETANIDE
     Indication: Fluid retention
     Dosage: UNK
     Route: 065
     Dates: start: 20250927

REACTIONS (2)
  - Drug ineffective [Unknown]
  - Product substitution issue [Unknown]
